FAERS Safety Report 16004695 (Version 3)
Quarter: 2019Q2

REPORT INFORMATION
  Report Type: Report from Study
  Country: ZA (occurrence: ZA)
  Receive Date: 20190226
  Receipt Date: 20190617
  Transmission Date: 20190711
  Serious: Yes (Hospitalization)
  Sender: FDA-Public Use
  Company Number: ZA-SA-2019SA046923

PATIENT
  Age: 43 Year
  Sex: Male

DRUGS (7)
  1. ZILDEM [Concomitant]
     Active Substance: DILTIAZEM HYDROCHLORIDE
     Dosage: 180 MG,BEFORE BREAKFAST, QD
     Dates: start: 20141212
  2. SIMVASTATIN. [Concomitant]
     Active Substance: SIMVASTATIN
     Dosage: 40 MG, AFTER SUPPER, QD
     Dates: start: 20141212
  3. OPTISULIN (INSULIN GLARGINE) [Suspect]
     Active Substance: INSULIN GLARGINE
     Dosage: 62 U, AT BED TIME,HS
     Dates: start: 20181210
  4. INSULIN GLULISINE [Suspect]
     Active Substance: INSULIN GLULISINE
     Dosage: 20 U, BEFORE BREAKFAST, BEFORE LUNCH AND BEFORE SUPPER, TID
     Dates: start: 20181210
  5. BEZAFIBRATE SANDOZ [Concomitant]
     Active Substance: BEZAFIBRATE
     Dosage: 400 MG, BEFORE SUPPER, QD
     Dates: start: 20141212
  6. DISPRIN [Concomitant]
     Active Substance: ASPIRIN
     Dosage: UNK, QD
     Dates: start: 20141212
  7. METFORMIN [Concomitant]
     Active Substance: METFORMIN HYDROCHLORIDE
     Dosage: 850 MG,BEFORE BREAKFAST-850, BEFORE SUPPER-850, BID
     Dates: start: 20141211

REACTIONS (6)
  - Diarrhoea [Unknown]
  - Rash [Not Recovered/Not Resolved]
  - Influenza like illness [Not Recovered/Not Resolved]
  - Glycosylated haemoglobin increased [Unknown]
  - Cough [Not Recovered/Not Resolved]
  - Gastrointestinal infection [Unknown]

NARRATIVE: CASE EVENT DATE: 20190217
